FAERS Safety Report 25484939 (Version 1)
Quarter: 2025Q2

REPORT INFORMATION
  Report Type: Spontaneous
  Country: CN (occurrence: CN)
  Receive Date: 20250626
  Receipt Date: 20250626
  Transmission Date: 20250717
  Serious: Yes (Life-Threatening, Hospitalization)
  Sender: JOHNSON AND JOHNSON
  Company Number: CN-JNJFOC-20250629861

PATIENT
  Age: 68 Year
  Sex: Female

DRUGS (1)
  1. RYBREVANT [Suspect]
     Active Substance: AMIVANTAMAB-VMJW
     Indication: Product used for unknown indication
     Route: 065

REACTIONS (13)
  - Anaphylactic shock [Unknown]
  - Complications of bone marrow transplant [Unknown]
  - Arrhythmia [Unknown]
  - Cardiac dysfunction [Unknown]
  - Myocardial infarction [Unknown]
  - Shock haemorrhagic [Unknown]
  - Disseminated intravascular coagulation [Unknown]
  - Septic shock [Unknown]
  - Hypoglycaemic coma [Unknown]
  - Diabetic hyperosmolar coma [Unknown]
  - Extrasystoles [Unknown]
  - Diarrhoea [Unknown]
  - Asthenia [Unknown]

NARRATIVE: CASE EVENT DATE: 20240621
